FAERS Safety Report 13549130 (Version 6)
Quarter: 2018Q1

REPORT INFORMATION
  Report Type: Spontaneous
  Country: SE (occurrence: SE)
  Receive Date: 20170516
  Receipt Date: 20180220
  Transmission Date: 20180508
  Serious: Yes (Death, Hospitalization, Other)
  Sender: FDA-Public Use
  Company Number: SE-IPSEN BIOPHARMACEUTICALS, INC.-2017-03872

PATIENT
  Age: 64 Year
  Sex: Male

DRUGS (42)
  1. BISOPROLOL [Concomitant]
     Active Substance: BISOPROLOL
     Indication: HYPERTENSION
     Dates: start: 20060119, end: 20150601
  2. CODEINE/PARACETAMOL [Concomitant]
     Active Substance: ACETAMINOPHEN\CODEINE PHOSPHATE
     Indication: ABDOMINAL PAIN
     Dosage: 500/30 MG
     Route: 048
     Dates: start: 20160406
  3. CALCICHEW D3 [Concomitant]
     Active Substance: CALCIUM\CHOLECALCIFEROL
     Indication: HYPOVITAMINOSIS
     Dosage: 500/400 IU
     Route: 048
     Dates: start: 20130924
  4. PANCREON [Concomitant]
     Active Substance: PANCRELIPASE
     Indication: NEUROENDOCRINE TUMOUR
     Dosage: THREE TIMES A DAY, AS REQUIRED
     Route: 048
     Dates: start: 20090911
  5. FOLIC ACID. [Concomitant]
     Active Substance: FOLIC ACID
     Indication: ANAEMIA FOLATE DEFICIENCY
     Route: 048
     Dates: start: 20101220
  6. OPIUM TINCTURE [Concomitant]
     Active Substance: MORPHINE
     Route: 048
     Dates: start: 20160303
  7. OCTREOTIDE. [Concomitant]
     Active Substance: OCTREOTIDE
     Indication: DRUG THERAPY
     Route: 042
     Dates: start: 20160519
  8. APREPITANT. [Concomitant]
     Active Substance: APREPITANT
     Indication: THERAPEUTIC PROCEDURE
     Dosage: UNDER REDUCTION SCHEDULE
     Route: 048
     Dates: start: 20160825
  9. ACETYLSALICYLACID [Concomitant]
     Indication: ANGINA PECTORIS
     Route: 048
     Dates: start: 20070919, end: 20150126
  10. ZOLPIDEM [Concomitant]
     Active Substance: ZOLPIDEM\ZOLPIDEM TARTRATE
     Indication: INSOMNIA
     Route: 048
     Dates: start: 20140114, end: 20150126
  11. LOPERAMIDE [Concomitant]
     Active Substance: LOPERAMIDE
     Indication: DIARRHOEA
     Route: 048
     Dates: start: 2010
  12. ATORVASTATIN [Concomitant]
     Active Substance: ATORVASTATIN
     Indication: HYPERCHOLESTEROLAEMIA
     Route: 048
     Dates: start: 20080123
  13. EPLERENON [Concomitant]
     Active Substance: EPLERENONE
     Indication: CARDIAC FAILURE
     Route: 048
     Dates: start: 20150810
  14. RHINOCORT [Concomitant]
     Active Substance: BUDESONIDE
     Indication: RHINORRHOEA
     Route: 045
     Dates: start: 20150421
  15. LIPITOR [Concomitant]
     Active Substance: ATORVASTATIN CALCIUM
     Indication: HYPERLIPIDAEMIA
     Route: 048
     Dates: start: 20110316
  16. VAMINE 14G/N/L [Concomitant]
     Indication: SUPPLEMENTATION THERAPY
     Dosage: IN CONJUNCTION WITH EVERY LUTETIUM TREATMENT
     Route: 042
     Dates: start: 20160321
  17. CANDESARTAN. [Concomitant]
     Active Substance: CANDESARTAN
     Indication: HYPERTENSION
     Route: 048
     Dates: start: 20070918, end: 20160303
  18. SOMATULINE PR [Suspect]
     Active Substance: LANREOTIDE ACETATE
     Indication: NEUROENDOCRINE TUMOUR
     Dosage: 120 MG
     Route: 030
     Dates: start: 20120924
  19. LX1606 [Concomitant]
     Indication: CARCINOID SYNDROME
     Route: 048
     Dates: start: 20141104
  20. NITROGLYCERIN. [Concomitant]
     Active Substance: NITROGLYCERIN
     Indication: ANGINA PECTORIS
     Route: 048
     Dates: start: 19930603
  21. BISOPROLOL [Concomitant]
     Active Substance: BISOPROLOL
     Indication: CARDIAC FAILURE
     Dates: start: 20150602
  22. HYDROXOCOBALAMIN [Concomitant]
     Active Substance: HYDROXOCOBALAMIN
     Indication: VITAMIN B12 DEFICIENCY
     Route: 030
     Dates: start: 20100825
  23. PALONOSTERON [Concomitant]
     Indication: PREMEDICATION
     Dosage: IN CONJUNCTION WITH EVERY LUTETIUM TREATMENT
     Route: 042
     Dates: start: 20160321
  24. ZOLPIDEM [Concomitant]
     Active Substance: ZOLPIDEM\ZOLPIDEM TARTRATE
     Route: 048
     Dates: start: 20150126
  25. FUROSEMIDE. [Concomitant]
     Active Substance: FUROSEMIDE
     Indication: CARDIAC FAILURE
     Route: 048
     Dates: start: 19930514, end: 20150601
  26. FUROSEMIDE. [Concomitant]
     Active Substance: FUROSEMIDE
     Route: 048
     Dates: start: 20160825
  27. ONDASETRON [Concomitant]
     Active Substance: ONDANSETRON
     Indication: NAUSEA
     Route: 048
     Dates: start: 20160620
  28. BETAPRED [Concomitant]
     Active Substance: BETAMETHASONE SODIUM PHOSPHATE
     Indication: PREMEDICATION
     Dosage: IN CONJUNCTION WITH EVERY LUTETIUM TREATMENT
     Route: 042
     Dates: start: 20160321
  29. ALLOPURINOL. [Concomitant]
     Active Substance: ALLOPURINOL
     Indication: DRUG THERAPY
     Dosage: MEDICATION IN CONJUNCTION WITH LUTETIUM TREATMENT
     Route: 048
     Dates: start: 20160519
  30. CANDESARTAN. [Concomitant]
     Active Substance: CANDESARTAN
     Route: 048
     Dates: start: 20160304
  31. CALCICHEW D3 [Concomitant]
     Active Substance: CALCIUM\CHOLECALCIFEROL
     Indication: CALCIUM DEFICIENCY
  32. FINASTERIDE. [Concomitant]
     Active Substance: FINASTERIDE
     Indication: BENIGN PROSTATIC HYPERPLASIA
     Dates: start: 20140826
  33. FUROSEMIDE. [Concomitant]
     Active Substance: FUROSEMIDE
     Route: 048
     Dates: start: 20150602, end: 20160823
  34. OPIUM TINCTURE [Concomitant]
     Active Substance: MORPHINE
     Route: 048
     Dates: start: 20160824
  35. PHENOXIMETHYLPENICILLIN [Concomitant]
     Route: 048
     Dates: start: 20160211, end: 20160217
  36. APIXABAN [Concomitant]
     Active Substance: APIXABAN
     Indication: ATRIAL FIBRILLATION
     Route: 048
     Dates: start: 20150127
  37. MORPHINE [Concomitant]
     Active Substance: MORPHINE
     Indication: ABDOMINAL PAIN
     Route: 048
     Dates: start: 20160324
  38. OPIUM TINCTURE [Concomitant]
     Active Substance: MORPHINE
     Indication: DIARRHOEA
     Route: 048
     Dates: start: 20140726, end: 20160302
  39. BETAMETHASONE. [Concomitant]
     Active Substance: BETAMETHASONE
     Indication: SUPPLEMENTATION THERAPY
     Route: 048
     Dates: start: 20160826
  40. SPIRONOLACTON [Concomitant]
     Active Substance: SPIRONOLACTONE
     Indication: CARDIAC FAILURE
     Route: 048
     Dates: start: 20111102
  41. ISOSORBID MONONITRATE [Concomitant]
     Active Substance: ISOSORBIDE MONONITRATE
     Indication: ANGINA PECTORIS
     Route: 048
     Dates: start: 19960705, end: 20150810
  42. OMEPRAZOLE. [Concomitant]
     Active Substance: OMEPRAZOLE
     Indication: ABDOMINAL PAIN UPPER
     Dates: start: 20140423

REACTIONS (27)
  - Organ failure [Fatal]
  - Vertigo [Not Recovered/Not Resolved]
  - Disease progression [Fatal]
  - Diarrhoea [Recovering/Resolving]
  - Fatigue [Unknown]
  - Dry skin [Unknown]
  - Benign prostatic hyperplasia [Not Recovered/Not Resolved]
  - Skin atrophy [Unknown]
  - General physical health deterioration [Fatal]
  - Pneumonia [Recovered/Resolved]
  - Sepsis [Recovered/Resolved]
  - Ejection fraction decreased [Unknown]
  - Calcium deficiency [Not Recovered/Not Resolved]
  - Peripheral coldness [Unknown]
  - Aortic valve incompetence [Unknown]
  - Metastases to bone [Unknown]
  - Abdominal pain upper [Not Recovered/Not Resolved]
  - Flushing [Unknown]
  - Weight decreased [Unknown]
  - Vitamin D deficiency [Not Recovered/Not Resolved]
  - Insomnia [Not Recovered/Not Resolved]
  - Nitrite urine present [Recovered/Resolved]
  - Abdominal pain [Unknown]
  - Infection [Recovered/Resolved]
  - Inappropriate schedule of drug administration [Unknown]
  - Anaemia [Not Recovered/Not Resolved]
  - Metastases to thorax [Unknown]

NARRATIVE: CASE EVENT DATE: 2013
